FAERS Safety Report 8666765 (Version 2)
Quarter: 2013Q3

REPORT INFORMATION
  Report Type: Spontaneous
  Country: US (occurrence: US)
  Receive Date: 20120716
  Receipt Date: 20130902
  Transmission Date: 20140515
  Serious: Yes (Hospitalization, Other)
  Sender: FDA-Public Use
  Company Number: US-ASTRAZENECA-2012SE45784

PATIENT
  Age: 71 Year
  Sex: Female
  Weight: 68 kg

DRUGS (39)
  1. NEXIUM [Suspect]
     Indication: GASTROOESOPHAGEAL REFLUX DISEASE
     Route: 048
     Dates: start: 2005, end: 201204
  2. NEXIUM [Suspect]
     Indication: GASTROOESOPHAGEAL REFLUX DISEASE
     Route: 048
     Dates: start: 2005, end: 201204
  3. NEXIUM [Suspect]
     Indication: HIATUS HERNIA
     Route: 048
     Dates: start: 2005, end: 201204
  4. NEXIUM [Suspect]
     Indication: CLOSTRIDIUM DIFFICILE SEPSIS
     Route: 048
     Dates: start: 2005, end: 201204
  5. NEXIUM [Suspect]
     Indication: GASTROOESOPHAGEAL REFLUX DISEASE
     Route: 048
     Dates: start: 2006, end: 2011
  6. NEXIUM [Suspect]
     Indication: GASTROOESOPHAGEAL REFLUX DISEASE
     Route: 048
     Dates: start: 2006, end: 2011
  7. NEXIUM [Suspect]
     Indication: HIATUS HERNIA
     Route: 048
     Dates: start: 2006, end: 2011
  8. NEXIUM [Suspect]
     Indication: CLOSTRIDIUM DIFFICILE SEPSIS
     Route: 048
     Dates: start: 2006, end: 2011
  9. NEXIUM [Suspect]
     Indication: GASTROOESOPHAGEAL REFLUX DISEASE
     Dosage: PRN
     Route: 048
  10. NEXIUM [Suspect]
     Indication: GASTROOESOPHAGEAL REFLUX DISEASE
     Dosage: PRN
     Route: 048
  11. NEXIUM [Suspect]
     Indication: HIATUS HERNIA
     Dosage: PRN
     Route: 048
  12. NEXIUM [Suspect]
     Indication: CLOSTRIDIUM DIFFICILE SEPSIS
     Dosage: PRN
     Route: 048
  13. NEXIUM [Suspect]
     Indication: GASTROOESOPHAGEAL REFLUX DISEASE
     Dosage: ESOMEPRAZOLE (GENERIC)
     Route: 048
  14. NEXIUM [Suspect]
     Indication: GASTROOESOPHAGEAL REFLUX DISEASE
     Dosage: ESOMEPRAZOLE (GENERIC)
     Route: 048
  15. NEXIUM [Suspect]
     Indication: HIATUS HERNIA
     Dosage: ESOMEPRAZOLE (GENERIC)
     Route: 048
  16. NEXIUM [Suspect]
     Indication: CLOSTRIDIUM DIFFICILE SEPSIS
     Dosage: ESOMEPRAZOLE (GENERIC)
     Route: 048
  17. NEXIUM [Suspect]
     Indication: GASTROOESOPHAGEAL REFLUX DISEASE
     Route: 048
     Dates: start: 2011
  18. NEXIUM [Suspect]
     Indication: GASTROOESOPHAGEAL REFLUX DISEASE
     Route: 048
     Dates: start: 2011
  19. NEXIUM [Suspect]
     Indication: HIATUS HERNIA
     Route: 048
     Dates: start: 2011
  20. NEXIUM [Suspect]
     Indication: CLOSTRIDIUM DIFFICILE SEPSIS
     Route: 048
     Dates: start: 2011
  21. OMEPRAZOLE [Suspect]
     Indication: GASTROOESOPHAGEAL REFLUX DISEASE
     Route: 048
     Dates: start: 2011, end: 2011
  22. CLINDAMYCIN [Suspect]
  23. PRADAXA [Concomitant]
     Indication: CEREBROVASCULAR ACCIDENT
     Route: 048
     Dates: start: 2011, end: 2012
  24. PRADAXA [Concomitant]
     Indication: CEREBROVASCULAR ACCIDENT
     Route: 048
  25. DILTIAZEM [Concomitant]
     Indication: HYPERTENSION
     Route: 048
  26. DILTIAZEM [Concomitant]
     Indication: CARDIAC DISORDER
     Route: 048
  27. COZAAR [Concomitant]
     Indication: HYPERTENSION
     Dosage: GENERIC, 50 MG DAILY
     Route: 048
     Dates: start: 2013
  28. COZAAR [Concomitant]
     Indication: HYPERTENSION
     Dosage: DAILY
     Route: 048
  29. CLARITIN [Concomitant]
     Indication: MULTIPLE ALLERGIES
     Dosage: PRN
     Route: 048
  30. TYLENOL [Concomitant]
     Dosage: PRN
     Route: 048
  31. PRAVACHOL [Concomitant]
     Indication: BLOOD CHOLESTEROL INCREASED
     Route: 048
  32. PRAVACHOL [Concomitant]
     Indication: BLOOD CHOLESTEROL INCREASED
     Route: 048
     Dates: start: 1998
  33. LEVOXYL [Concomitant]
     Indication: THYROID DISORDER
     Route: 048
  34. LEVOXYL [Concomitant]
     Indication: THYROID DISORDER
     Dosage: SYNTHROID, 50 MCG, DAILY
     Route: 048
     Dates: start: 1983
  35. LEVOXYL [Concomitant]
     Indication: THYROID DISORDER
     Route: 048
     Dates: start: 2009, end: 201212
  36. ASA [Concomitant]
  37. WARFARIN [Concomitant]
     Indication: ANTICOAGULANT THERAPY
     Dosage: 5MG T, W, TH, SAT, S
     Route: 048
     Dates: start: 2012
  38. WARFARIN [Concomitant]
     Indication: ANTICOAGULANT THERAPY
     Dosage: 2.5MG MONDAY + FRIDAY
     Route: 048
     Dates: start: 2012
  39. PROBIOTIC VSL#3 [Concomitant]
     Indication: ABDOMINAL PAIN UPPER

REACTIONS (22)
  - Gastritis [Recovering/Resolving]
  - Transient ischaemic attack [Unknown]
  - Cerebrovascular accident [Recovered/Resolved]
  - Atrial fibrillation [Not Recovered/Not Resolved]
  - Therapeutic response unexpected with drug substitution [Unknown]
  - Clostridium difficile infection [Recovered/Resolved]
  - Chest pain [Recovered/Resolved]
  - Nerve compression [Recovered/Resolved]
  - Fall [Recovered/Resolved]
  - Sialoadenitis [Recovered/Resolved]
  - Gastrooesophageal reflux disease [Recovered/Resolved]
  - Head injury [Recovered/Resolved]
  - Aphagia [Recovered/Resolved]
  - Gastritis [Recovered/Resolved]
  - Gastric ulcer [Recovered/Resolved]
  - Large intestinal ulcer [Recovered/Resolved]
  - Weight decreased [Recovered/Resolved]
  - Food intolerance [Not Recovered/Not Resolved]
  - Abdominal pain upper [Recovered/Resolved]
  - Dizziness [Recovered/Resolved]
  - Drug dose omission [Recovered/Resolved]
  - Intentional drug misuse [Recovered/Resolved]
